FAERS Safety Report 25612101 (Version 2)
Quarter: 2025Q3

REPORT INFORMATION
  Report Type: Spontaneous
  Country: US (occurrence: US)
  Receive Date: 20250728
  Receipt Date: 20250804
  Transmission Date: 20251021
  Serious: No
  Sender: AMGEN
  Company Number: US-AMGEN-USASP2025146610

PATIENT

DRUGS (1)
  1. RIABNI [Suspect]
     Active Substance: RITUXIMAB-ARRX
     Indication: Leukocytosis
     Route: 065

REACTIONS (1)
  - Off label use [Unknown]
